FAERS Safety Report 25002691 (Version 1)
Quarter: 2025Q1

REPORT INFORMATION
  Report Type: Spontaneous
  Country: US (occurrence: US)
  Receive Date: 20250224
  Receipt Date: 20250224
  Transmission Date: 20250408
  Serious: No
  Sender: Kenvue
  Company Number: US-KENVUE-20250110131

PATIENT

DRUGS (4)
  1. ZYRTEC [Suspect]
     Active Substance: CETIRIZINE HYDROCHLORIDE
     Indication: Arthropod bite
     Route: 048
     Dates: start: 20250123
  2. SAVLON ANTISEPTIC [Concomitant]
     Indication: Arthropod bite
     Route: 061
     Dates: start: 20250123
  3. OLIVE OIL [Concomitant]
     Active Substance: OLIVE OIL
     Indication: Arthropod bite
     Route: 061
     Dates: start: 20250123
  4. CASTOR OIL [Concomitant]
     Active Substance: CASTOR OIL
     Indication: Arthropod bite
     Route: 061
     Dates: start: 20250123

REACTIONS (2)
  - Product use in unapproved indication [Unknown]
  - Therapeutic response unexpected [Unknown]

NARRATIVE: CASE EVENT DATE: 20250123
